FAERS Safety Report 10308565 (Version 1)
Quarter: 2014Q3

REPORT INFORMATION
  Report Type: Spontaneous
  Country: US (occurrence: US)
  Receive Date: 20140716
  Receipt Date: 20140716
  Transmission Date: 20150326
  Serious: Yes (Other)
  Sender: FDA-Public Use
  Company Number: US-VIIV HEALTHCARE LIMITED-A1080903A

PATIENT
  Age: 45 Year
  Sex: Female

DRUGS (5)
  1. TIVICAY [Suspect]
     Active Substance: DOLUTEGRAVIR SODIUM
     Indication: HIV INFECTION
     Dosage: 50MG PER DAY
     Route: 048
     Dates: start: 201406
  2. NORVIR [Suspect]
     Active Substance: RITONAVIR
     Dosage: 1U PER DAY
     Route: 065
  3. EPZICOM [Suspect]
     Active Substance: ABACAVIR SULFATE\LAMIVUDINE
     Indication: HIV INFECTION
     Dosage: 1TAB PER DAY
     Route: 048
  4. NO CONCURRENT MEDICATION [Concomitant]
     Active Substance: UNSPECIFIED INGREDIENT
  5. REYATAZ [Suspect]
     Active Substance: ATAZANAVIR SULFATE
     Dosage: 1CAP PER DAY
     Route: 048

REACTIONS (3)
  - Gastric bypass [Recovered/Resolved]
  - Nausea [Recovered/Resolved]
  - Abdominal discomfort [Recovered/Resolved]

NARRATIVE: CASE EVENT DATE: 201309
